FAERS Safety Report 10429281 (Version 1)
Quarter: 2014Q3

REPORT INFORMATION
  Report Type: Spontaneous
  Country: US (occurrence: None)
  Receive Date: 20140902
  Receipt Date: 20140902
  Transmission Date: 20150326
  Serious: No
  Sender: FDA-Public Use
  Company Number: None

PATIENT
  Age: 31 Year
  Sex: Male

DRUGS (8)
  1. DIPHENHYDRAMINE [Suspect]
     Active Substance: DIPHENHYDRAMINE
     Indication: SUICIDE ATTEMPT
     Dosage: 50 TABS
     Route: 048
     Dates: end: 20140706
  2. DOCUSATE [Concomitant]
     Active Substance: DOCUSATE
  3. SENNA [Suspect]
     Active Substance: SENNA LEAF\SENNOSIDES\SENNOSIDES A AND B
  4. ACETAMINOPHEN. [Suspect]
     Active Substance: ACETAMINOPHEN
     Route: 048
  5. ACTYLCYSTEINE [Concomitant]
  6. HEPARIN [Concomitant]
     Active Substance: HEPARIN SODIUM
  7. PIPERACILLIN/TAZOBACTAM [Concomitant]
     Active Substance: PIPERACILLIN SODIUM\TAZOBACTAM SODIUM
  8. POLYETHYLENE GLYCOL 3350. [Concomitant]
     Active Substance: POLYETHYLENE GLYCOL 3350

REACTIONS (5)
  - Blood creatine phosphokinase increased [None]
  - Intentional overdose [None]
  - Suicide attempt [None]
  - Convulsion [None]
  - Self injurious behaviour [None]

NARRATIVE: CASE EVENT DATE: 20140707
